FAERS Safety Report 23685054 (Version 2)
Quarter: 2024Q1

REPORT INFORMATION
  Report Type: Report from Study
  Country: GR (occurrence: GR)
  Receive Date: 20240329
  Receipt Date: 20240331
  Transmission Date: 20240409
  Serious: Yes (Hospitalization)
  Sender: FDA-Public Use
  Company Number: GR-ABBVIE-5376009

PATIENT
  Age: 77 Year
  Sex: Female

DRUGS (6)
  1. CARBIDOPA\LEVODOPA [Suspect]
     Active Substance: CARBIDOPA\LEVODOPA
     Indication: Parkinson^s disease
     Dosage: MORNING DOSE: 5.0 ML; CONTINUOUS RATE: 4.2 ML/H; EXTRA DOSE: 2.1 ML( 24 HOUR ADMINISTRATION)
     Route: 050
     Dates: start: 20151013
  2. CARBIDOPA\LEVODOPA [Suspect]
     Active Substance: CARBIDOPA\LEVODOPA
     Dosage: MORNING DOSE: 5.0 ML; CONTINUOUS RATE: 4.1 ML/H; EXTRA DOSE: 1.8 ML (24 HOUR ADMINISTRATION)
     Route: 050
  3. CARBIDOPA\LEVODOPA [Suspect]
     Active Substance: CARBIDOPA\LEVODOPA
     Dosage: MORNING DOSE: 3.0 ML; CONTINUOUS RATE: 1.8 ML/H; EXTRA DOSE: 0.9 ML (24 HOUR ADMINISTRATION)
     Route: 050
     Dates: end: 20240325
  4. CARBIDOPA\LEVODOPA [Suspect]
     Active Substance: CARBIDOPA\LEVODOPA
     Dosage: MORNING DOSE: 3.0 ML; CONTINUOUS RATE: 1.8 ML/H; EXTRA DOSE: 0.9 ML (24 HOUR ADMINISTRATION)
     Route: 050
     Dates: start: 20240326
  5. EFFEXOR [Concomitant]
     Active Substance: VENLAFAXINE HYDROCHLORIDE
     Indication: Product used for unknown indication
     Route: 048
  6. MEDOPEXOL [Concomitant]
     Indication: Product used for unknown indication
     Dosage: TIME INTERVAL: 0.33333333 DAYS
     Route: 048

REACTIONS (6)
  - Infection [Not Recovered/Not Resolved]
  - Hyperkinesia [Recovered/Resolved]
  - Dystonia [Recovered/Resolved]
  - Product quality issue [Recovered/Resolved]
  - Incorrect route of product administration [Recovered/Resolved]
  - Deep brain stimulation [Unknown]

NARRATIVE: CASE EVENT DATE: 20230817
